FAERS Safety Report 18957999 (Version 1)
Quarter: 2021Q1

REPORT INFORMATION
  Report Type: Spontaneous
  Country: US (occurrence: US)
  Receive Date: 20210302
  Receipt Date: 20210302
  Transmission Date: 20210420
  Serious: Yes (Other)
  Sender: FDA-Public Use
  Company Number: None

PATIENT
  Age: 64 Year
  Sex: Female
  Weight: 81.3 kg

DRUGS (4)
  1. BARICITINIB. [Suspect]
     Active Substance: BARICITINIB
     Indication: COVID-19
     Route: 048
     Dates: start: 20210203, end: 20210216
  2. DEXAMETHASONE. [Concomitant]
     Active Substance: DEXAMETHASONE
     Dates: start: 20210202, end: 20210224
  3. REMDESIVIR. [Concomitant]
     Active Substance: REMDESIVIR
     Dates: start: 20210202, end: 20210206
  4. FLUCONAZOLE. [Concomitant]
     Active Substance: FLUCONAZOLE
     Dates: start: 20210219

REACTIONS (5)
  - Liver disorder [None]
  - Candida infection [None]
  - Candida test positive [None]
  - Renal disorder [None]
  - Therapy interrupted [None]

NARRATIVE: CASE EVENT DATE: 20210214
